FAERS Safety Report 16459111 (Version 1)
Quarter: 2019Q2

REPORT INFORMATION
  Report Type: Spontaneous
  Country: TR (occurrence: TR)
  Receive Date: 20190620
  Receipt Date: 20190620
  Transmission Date: 20190711
  Serious: Yes (Other)
  Sender: FDA-Public Use
  Company Number: PHHY2019TR139055

PATIENT
  Age: 20 Year
  Sex: Male

DRUGS (4)
  1. DEFLAZACORT [Suspect]
     Active Substance: DEFLAZACORT
     Indication: PULMONARY ALVEOLAR HAEMORRHAGE
     Dosage: 1 MG/KG, QD
     Route: 065
  2. MYCOPHENOLATE MOFETIL. [Suspect]
     Active Substance: MYCOPHENOLATE MOFETIL
     Indication: PULMONARY ALVEOLAR HAEMORRHAGE
     Dosage: 2 G, QD
     Route: 065
  3. METHYLPREDNISOLONE. [Suspect]
     Active Substance: METHYLPREDNISOLONE
     Indication: PULMONARY ALVEOLAR HAEMORRHAGE
     Dosage: 1 G, QD
     Route: 042
  4. CYCLOPHOSPHAMIDE. [Suspect]
     Active Substance: CYCLOPHOSPHAMIDE
     Indication: PULMONARY ALVEOLAR HAEMORRHAGE
     Dosage: 1 G, QMO
     Route: 065

REACTIONS (2)
  - Neutropenia [Recovering/Resolving]
  - Product use in unapproved indication [Unknown]
